FAERS Safety Report 8259884-1 (Version None)
Quarter: 2012Q2

REPORT INFORMATION
  Report Type: 
  Country: None (occurrence: None)
  Receive Date: 20120404
  Receipt Date: 20120329
  Transmission Date: 20120825
  Serious: Yes (Hospitalization)
  Sender: FDA-Public Use
  Company Number: JP-GLAXOSMITHKLINE-B0785929A

PATIENT
  Sex: Female

DRUGS (6)
  1. CANDESARTAN CILEXETIL [Suspect]
     Indication: HYPERTENSION
     Dosage: 4MG PER DAY
     Route: 048
  2. TRICHLORMETHIAZIDE [Suspect]
     Indication: HYPERTENSION
     Dosage: 1MG PER DAY
     Route: 048
  3. DEPAS [Suspect]
     Indication: ANXIETY DISORDER
     Dosage: 1MG PER DAY
     Route: 048
  4. VALTREX [Suspect]
     Indication: HERPES ZOSTER
     Dosage: 3000MG PER DAY
     Route: 048
     Dates: start: 20120220, end: 20120224
  5. CADUET [Suspect]
     Indication: HYPERTENSION
     Dosage: 1IUAX PER DAY
     Route: 048
  6. PURSENNID [Suspect]
     Indication: CONSTIPATION
     Dosage: 24MG PER DAY
     Route: 048

REACTIONS (7)
  - HALLUCINATION, AUDITORY [None]
  - DECREASED APPETITE [None]
  - RENAL FAILURE ACUTE [None]
  - HYPORESPONSIVE TO STIMULI [None]
  - FATIGUE [None]
  - BEDRIDDEN [None]
  - PSYCHIATRIC SYMPTOM [None]
